FAERS Safety Report 16060743 (Version 42)
Quarter: 2023Q2

REPORT INFORMATION
  Report Type: Spontaneous
  Country: CA (occurrence: CA)
  Receive Date: 20190312
  Receipt Date: 20230529
  Transmission Date: 20230721
  Serious: Yes (Other)
  Sender: FDA-Public Use
  Company Number: CA-CELLTRION INC.-2018CA017918

PATIENT

DRUGS (59)
  1. INFLECTRA [Suspect]
     Active Substance: INFLIXIMAB-DYYB
     Indication: Ankylosing spondylitis
     Dosage: 600 MG, 0, 2, 6, THEN EVERY 8 WEEKS, Q 0 WEEK DOSE
     Route: 042
     Dates: start: 20180129, end: 20180129
  2. INFLECTRA [Suspect]
     Active Substance: INFLIXIMAB-DYYB
     Indication: Rheumatoid arthritis
     Dosage: 600 MG, 0, 2, 6, THEN EVERY 8 WEEKS, Q 2 WEEK DOSE
     Route: 042
     Dates: start: 20180213, end: 20180213
  3. INFLECTRA [Suspect]
     Active Substance: INFLIXIMAB-DYYB
     Dosage: 600 MG, 0, 2, 6, THEN EVERY 8 WEEKS, Q 6 WEEK DOSE
     Route: 042
     Dates: start: 20180313, end: 20180313
  4. INFLECTRA [Suspect]
     Active Substance: INFLIXIMAB-DYYB
     Dosage: 600 MG, 0, 2, 6, THEN EVERY 8 WEEKS (EVERY 8 WEEKS)
     Route: 042
     Dates: start: 20180508, end: 20180910
  5. INFLECTRA [Suspect]
     Active Substance: INFLIXIMAB-DYYB
     Dosage: 315 MG, EVERY 8 WEEKS
     Route: 042
     Dates: start: 20180716
  6. INFLECTRA [Suspect]
     Active Substance: INFLIXIMAB-DYYB
     Dosage: 315 MG, EVERY 8 WEEKS
     Route: 042
     Dates: start: 20180910
  7. INFLECTRA [Suspect]
     Active Substance: INFLIXIMAB-DYYB
     Dosage: 600 MG, Q (EVERY) 6 WEEKS
     Route: 042
     Dates: start: 20181022, end: 20190225
  8. INFLECTRA [Suspect]
     Active Substance: INFLIXIMAB-DYYB
     Dosage: 315 MG, EVERY 8 WEEKS
     Route: 042
     Dates: start: 20190114
  9. INFLECTRA [Suspect]
     Active Substance: INFLIXIMAB-DYYB
     Dosage: 315 MG, EVERY 8 WEEKS
     Route: 042
     Dates: start: 20190225
  10. INFLECTRA [Suspect]
     Active Substance: INFLIXIMAB-DYYB
     Dosage: 315 MG, EVERY 6 WEEKS
     Route: 042
  11. INFLECTRA [Suspect]
     Active Substance: INFLIXIMAB-DYYB
     Dosage: 600 MG, EVERY 4 WEEKS
     Route: 042
     Dates: start: 20190326
  12. INFLECTRA [Suspect]
     Active Substance: INFLIXIMAB-DYYB
     Dosage: 600 MG EVERY 4 WEEKS
     Route: 042
     Dates: start: 20190814
  13. INFLECTRA [Suspect]
     Active Substance: INFLIXIMAB-DYYB
     Dosage: 600 MG EVERY 4 WEEKS
     Route: 042
     Dates: start: 20190913
  14. INFLECTRA [Suspect]
     Active Substance: INFLIXIMAB-DYYB
     Dosage: 600 MG,EVERY 4 WEEKS
     Route: 042
     Dates: start: 20191009
  15. INFLECTRA [Suspect]
     Active Substance: INFLIXIMAB-DYYB
     Dosage: 600 MG, EVERY 4 WEEKS
     Route: 042
     Dates: start: 20200610
  16. INFLECTRA [Suspect]
     Active Substance: INFLIXIMAB-DYYB
     Dosage: 600 MG, EVERY 4 WEEKS
     Route: 042
     Dates: start: 20200709
  17. INFLECTRA [Suspect]
     Active Substance: INFLIXIMAB-DYYB
     Dosage: 600 MG, EVERY 4 WEEKS
     Route: 042
     Dates: start: 20200811
  18. INFLECTRA [Suspect]
     Active Substance: INFLIXIMAB-DYYB
     Dosage: 600 MG, EVERY 4 WEEKS
     Route: 042
     Dates: start: 20200914
  19. INFLECTRA [Suspect]
     Active Substance: INFLIXIMAB-DYYB
     Dosage: 600 MG, EVERY 4 WEEKS
     Route: 042
     Dates: start: 20201103
  20. INFLECTRA [Suspect]
     Active Substance: INFLIXIMAB-DYYB
     Dosage: 600 MG, EVERY 4 WEEKS
     Route: 042
     Dates: start: 20201207
  21. INFLECTRA [Suspect]
     Active Substance: INFLIXIMAB-DYYB
     Dosage: 600 MG, EVERY 4 WEEKS
     Route: 042
     Dates: start: 20210122
  22. INFLECTRA [Suspect]
     Active Substance: INFLIXIMAB-DYYB
     Dosage: 600 MG, EVERY 4 WEEKS
     Route: 042
     Dates: start: 20210528
  23. INFLECTRA [Suspect]
     Active Substance: INFLIXIMAB-DYYB
     Dosage: 600 MG, EVERY 4 WEEKS
     Route: 042
     Dates: start: 20210709
  24. INFLECTRA [Suspect]
     Active Substance: INFLIXIMAB-DYYB
     Dosage: 600 MG, EVERY 4 WEEKS
     Route: 042
     Dates: start: 20210806
  25. INFLECTRA [Suspect]
     Active Substance: INFLIXIMAB-DYYB
     Dosage: 600 MG, EVERY 4 WEEKS
     Route: 042
     Dates: start: 20210927
  26. INFLECTRA [Suspect]
     Active Substance: INFLIXIMAB-DYYB
     Dosage: 600 MG, EVERY 4 WEEKS
     Route: 042
     Dates: start: 20211122
  27. INFLECTRA [Suspect]
     Active Substance: INFLIXIMAB-DYYB
     Dosage: 600 MG, EVERY 4 WEEKS
     Route: 042
     Dates: start: 20220106
  28. INFLECTRA [Suspect]
     Active Substance: INFLIXIMAB-DYYB
     Dosage: 600 MG, EVERY 4 WEEKS
     Route: 042
     Dates: start: 20220209
  29. INFLECTRA [Suspect]
     Active Substance: INFLIXIMAB-DYYB
     Dosage: 600 MG, EVERY 4 WEEKS
     Route: 042
     Dates: start: 20220422
  30. INFLECTRA [Suspect]
     Active Substance: INFLIXIMAB-DYYB
     Dosage: 600 MG, EVERY 4 WEEKS
     Route: 042
     Dates: start: 20220621
  31. INFLECTRA [Suspect]
     Active Substance: INFLIXIMAB-DYYB
     Dosage: 600 MG, EVERY 4 WEEKS
     Route: 042
     Dates: start: 20220822
  32. INFLECTRA [Suspect]
     Active Substance: INFLIXIMAB-DYYB
     Dosage: 600 MG, EVERY 4 WEEKS
     Route: 042
     Dates: start: 20220919
  33. INFLECTRA [Suspect]
     Active Substance: INFLIXIMAB-DYYB
     Dosage: 600 MG, EVERY 4 WEEKS
     Route: 042
     Dates: start: 20221103
  34. INFLECTRA [Suspect]
     Active Substance: INFLIXIMAB-DYYB
     Dosage: 600 MG, EVERY 4 WEEKS
     Route: 042
     Dates: start: 20221219
  35. INFLECTRA [Suspect]
     Active Substance: INFLIXIMAB-DYYB
     Dosage: 600 MG, EVERY 4 WEEKS
     Route: 042
     Dates: start: 20230202
  36. INFLECTRA [Suspect]
     Active Substance: INFLIXIMAB-DYYB
     Dosage: 600 MG , EVERY 4 WEEKS(Q5 WEEKS AND 4 DAYS)
     Route: 042
     Dates: start: 20230314
  37. TRAZODONE HYDROCHLORIDE [Concomitant]
     Active Substance: TRAZODONE HYDROCHLORIDE
     Dosage: 100 MG, UNK
  38. ATIVAN [Concomitant]
     Active Substance: LORAZEPAM
     Dosage: 1 MG, UNK
  39. CANNABIS SATIVA SUBSP. INDICA TOP [Concomitant]
     Active Substance: CANNABIS SATIVA SUBSP. INDICA TOP
     Dosage: UNK
  40. CANNABIS SATIVA SUBSP. INDICA TOP [Concomitant]
     Active Substance: CANNABIS SATIVA SUBSP. INDICA TOP
     Dosage: UNK, DOSAGE INFO NOT AVAILABLE ROUTE: VAPED OR SMOKED
  41. CANNABIS SATIVA SUBSP. INDICA TOP [Concomitant]
     Active Substance: CANNABIS SATIVA SUBSP. INDICA TOP
     Dosage: 1 DF, DOSAGE INFO NOT AVAILABLE ROUTE: VAPED OR SMOKED
     Route: 065
  42. CANNABIS SATIVA SUBSP. INDICA TOP [Concomitant]
     Active Substance: CANNABIS SATIVA SUBSP. INDICA TOP
     Dosage: 1 DF, EVERY DAY
     Route: 065
     Dates: start: 20220621
  43. CANNABIS SATIVA SUBSP. INDICA TOP [Concomitant]
     Active Substance: CANNABIS SATIVA SUBSP. INDICA TOP
     Dosage: 1 DF, DOSAGE INFO NOT AVAILABLE ROUTE: VAPED OR SMOKED
     Route: 065
  44. DOXEPIN [Concomitant]
     Active Substance: DOXEPIN
     Dosage: 75 MG, 1X/DAY
     Dates: start: 2015
  45. DICLECTIN [Concomitant]
     Active Substance: DOXYLAMINE SUCCINATE\PYRIDOXINE HYDROCHLORIDE
     Dosage: 20 MG, 1X/DAY
     Dates: start: 1999
  46. DICLECTIN [Concomitant]
     Active Substance: DOXYLAMINE SUCCINATE\PYRIDOXINE HYDROCHLORIDE
     Dosage: 10 MG
  47. DILAUDID [Concomitant]
     Active Substance: HYDROMORPHONE HYDROCHLORIDE
     Dosage: 4-5MG 1X/DAY
  48. FOLIC ACID [Concomitant]
     Active Substance: FOLIC ACID
     Dosage: 5 MG, WEEKLY
  49. HYDROMORPHONE [Concomitant]
     Active Substance: HYDROMORPHONE
     Dosage: 18 MG, 1X/DAY
  50. HYDROMORPHONE [Concomitant]
     Active Substance: HYDROMORPHONE
     Dosage: 30 MG, UNK
  51. IMOVANE [Concomitant]
     Active Substance: ZOPICLONE
     Dosage: 7.5 MG, UNK
  52. METHOTREXATE [Concomitant]
     Active Substance: METHOTREXATE
     Dosage: 10 DF, WEEKLY
     Route: 048
     Dates: start: 1999
  53. ONDANSETRON [Concomitant]
     Active Substance: ONDANSETRON
     Dosage: 4 MG, 3X/DAY
     Dates: start: 2016
  54. PANTOPRAZOLE SODIUM [Concomitant]
     Active Substance: PANTOPRAZOLE SODIUM
     Dosage: 40 MG, 1X/DAY
     Dates: start: 2009
  55. PREDNISONE [Concomitant]
     Active Substance: PREDNISONE
     Dosage: UNK, 1X/DAY, 1-20 MG QD (1X/DAY) MANY COURSES
     Route: 048
     Dates: start: 1999
  56. PROLIA [Concomitant]
     Active Substance: DENOSUMAB
     Dosage: 30 MG/ML, UNK
  57. SALAGEN [Concomitant]
     Active Substance: PILOCARPINE HYDROCHLORIDE
     Dosage: UNK
  58. VITAMIN D NOS [Concomitant]
     Active Substance: VITAMIN D NOS
     Dosage: 50000 IU, WEEKLY
  59. CHOLECALCIFEROL [Concomitant]
     Active Substance: CHOLECALCIFEROL
     Dosage: 50000 IU, WEEKLY

REACTIONS (41)
  - Anal abscess [Recovered/Resolved]
  - Weight increased [Not Recovered/Not Resolved]
  - Mass [Unknown]
  - Inflammatory bowel disease [Unknown]
  - Behcet^s syndrome [Unknown]
  - Hidradenitis [Unknown]
  - Disease recurrence [Unknown]
  - Therapeutic product effect incomplete [Unknown]
  - Therapeutic response shortened [Not Recovered/Not Resolved]
  - Arthralgia [Recovered/Resolved]
  - Blood pressure increased [Unknown]
  - Blood pressure diastolic decreased [Unknown]
  - Sleep disorder [Recovering/Resolving]
  - Poor quality sleep [Recovering/Resolving]
  - Condition aggravated [Unknown]
  - Myalgia [Unknown]
  - Groin pain [Unknown]
  - Heart rate decreased [Unknown]
  - Aortic disorder [Unknown]
  - Chest pain [Unknown]
  - Back pain [Unknown]
  - Dyspnoea [Unknown]
  - Fatigue [Unknown]
  - Aortic aneurysm [Unknown]
  - Infusion site haemorrhage [Unknown]
  - Infusion site haematoma [Unknown]
  - Pain [Not Recovered/Not Resolved]
  - Cyst [Unknown]
  - Wound [Not Recovered/Not Resolved]
  - Skin infection [Recovered/Resolved]
  - Fistula [Recovered/Resolved]
  - Abscess [Recovered/Resolved]
  - Joint swelling [Unknown]
  - Arthralgia [Unknown]
  - Infection [Unknown]
  - Blood pressure fluctuation [Unknown]
  - Fistula [Unknown]
  - Pain in extremity [Unknown]
  - Off label use [Unknown]
  - Intentional product use issue [Unknown]
  - Inappropriate schedule of product administration [Unknown]

NARRATIVE: CASE EVENT DATE: 20180129
